FAERS Safety Report 4883345-0 (Version None)
Quarter: 2006Q1

REPORT INFORMATION
  Report Type: 
  Country: None (occurrence: None)
  Receive Date: 20060118
  Receipt Date: 20060114
  Transmission Date: 20060701
  Serious: Yes (Life-Threatening, Hospitalization)
  Sender: FDA-Public Use
  Company Number: GB-GLAXOSMITHKLINE-B0406563A

PATIENT
  Age: 35 Year
  Sex: Female

DRUGS (9)
  1. AUGMENTIN '125' [Suspect]
     Dosage: .6G SINGLE DOSE
     Route: 042
     Dates: start: 20051228, end: 20051228
  2. SEREVENT [Concomitant]
  3. SALBUTAMOL [Concomitant]
  4. BECLOMETHASONE DIPROPIONATE [Concomitant]
  5. RANITIDINE [Concomitant]
     Indication: PREOPERATIVE CARE
     Dosage: 150MG PER DAY
     Route: 048
  6. EPHEDRINE [Concomitant]
     Dosage: 2 PER DAY
     Route: 042
     Dates: start: 20051228, end: 20051228
  7. PHENYLEPHRINE [Concomitant]
     Dosage: 4 PER DAY
     Route: 040
     Dates: start: 20051228, end: 20051228
  8. SYNTOCINON [Concomitant]
     Route: 042
     Dates: start: 20051228, end: 20051228
  9. BUPIVACAINE + DIAMORPHINE [Concomitant]
     Dates: start: 20051228

REACTIONS (3)
  - ANAPHYLACTIC REACTION [None]
  - HYPOTENSION [None]
  - HYPOXIA [None]
